FAERS Safety Report 5446660-8 (Version None)
Quarter: 2007Q3

REPORT INFORMATION
  Report Type: 
  Country: None (occurrence: None)
  Receive Date: 20070907
  Receipt Date: 20070828
  Transmission Date: 20080115
  Serious: Yes (Other)
  Sender: FDA-Public Use
  Company Number: US-SHR-US-2007-026283

PATIENT
  Age: 54 Year
  Sex: Female
  Weight: 73.5 kg

DRUGS (9)
  1. BETASERON [Suspect]
     Indication: SECONDARY PROGRESSIVE MULTIPLE SCLEROSIS
     Dosage: 8 MIU, EVERY 2D
     Route: 058
     Dates: start: 19990101
  2. DARVOCET [Concomitant]
  3. LIBRAX [Concomitant]
  4. NEURONTIN [Concomitant]
  5. FOLIC ACID [Concomitant]
  6. ZOLOFT [Concomitant]
  7. SKELAXIN [Concomitant]
  8. ALPRAZOLAM [Concomitant]
  9. BACLOFEN [Concomitant]

REACTIONS (8)
  - ABDOMINAL PAIN [None]
  - BALANCE DISORDER [None]
  - FALL [None]
  - HEAD INJURY [None]
  - HEMIPLEGIA [None]
  - OEDEMA PERIPHERAL [None]
  - POLYURIA [None]
  - SPEECH DISORDER [None]
